FAERS Safety Report 8872609 (Version 1)
Quarter: 2012Q4

REPORT INFORMATION
  Report Type: Spontaneous
  Country: DE (occurrence: None)
  Receive Date: 20121024
  Receipt Date: 20121024
  Transmission Date: 20130627
  Serious: Yes (Disabling)
  Sender: FDA-Public Use
  Company Number: ACO_32534_2012

PATIENT
  Age: 61 Year
  Sex: Male

DRUGS (1)
  1. FAMPYRA [Suspect]
     Indication: GAIT DISTURBANCE
     Route: 048
     Dates: start: 20120315, end: 20120504

REACTIONS (2)
  - Bedridden [None]
  - Walking disability [None]
